FAERS Safety Report 6141449-9 (Version None)
Quarter: 2009Q2

REPORT INFORMATION
  Report Type: 
  Country: None (occurrence: None)
  Receive Date: 20090402
  Receipt Date: 20090325
  Transmission Date: 20091009
  Serious: Yes (Other)
  Sender: FDA-Public Use
  Company Number: GB-MERCK-0902GBR00033

PATIENT
  Age: 57 Year
  Sex: Male
  Weight: 86 kg

DRUGS (1)
  1. ZOCOR [Suspect]
     Indication: TYPE V HYPERLIPIDAEMIA
     Route: 048
     Dates: start: 19990101

REACTIONS (4)
  - DYSPNOEA [None]
  - FATIGUE [None]
  - INSPIRATORY CAPACITY DECREASED [None]
  - MYOPATHY [None]
